FAERS Safety Report 14099369 (Version 1)
Quarter: 2017Q4

REPORT INFORMATION
  Report Type: Other
  Country: US (occurrence: US)
  Receive Date: 20171017
  Receipt Date: 20171017
  Transmission Date: 20180321
  Serious: Yes (Hospitalization, Other)
  Sender: FDA-Public Use
  Company Number: US-ALSI-201700364

PATIENT
  Age: 61 Year
  Sex: Male

DRUGS (1)
  1. OXYGEN USP [Suspect]
     Active Substance: OXYGEN
     Indication: PRODUCT USED FOR UNKNOWN INDICATION
     Route: 055

REACTIONS (3)
  - Thermal burn [Recovering/Resolving]
  - Intentional product misuse [Recovering/Resolving]
  - Accident [Recovering/Resolving]
